FAERS Safety Report 5852712-0 (Version None)
Quarter: 2008Q3

REPORT INFORMATION
  Report Type: 
  Country: None (occurrence: None)
  Receive Date: 20080819
  Receipt Date: 20080807
  Transmission Date: 20090109
  Serious: Yes (Death)
  Sender: FDA-Public Use
  Company Number: 001472

PATIENT
  Age: 63 Year
  Sex: Male

DRUGS (12)
  1. BUSULFEX [Suspect]
     Indication: STEM CELL TRANSPLANT
     Dosage: 24.9 ML, DAILY DOSE, INTRAVENOUS, 33.2 ML, DAILY DOSE; INTRAVENOUS, 8.3 ML, DAILY DOSE; SEE IMAGE
     Route: 042
     Dates: start: 20070630, end: 20070630
  2. BUSULFEX [Suspect]
     Indication: STEM CELL TRANSPLANT
     Dosage: 24.9 ML, DAILY DOSE, INTRAVENOUS, 33.2 ML, DAILY DOSE; INTRAVENOUS, 8.3 ML, DAILY DOSE; SEE IMAGE
     Route: 042
     Dates: start: 20070701, end: 20070701
  3. BUSULFEX [Suspect]
     Indication: STEM CELL TRANSPLANT
     Dosage: 24.9 ML, DAILY DOSE, INTRAVENOUS, 33.2 ML, DAILY DOSE; INTRAVENOUS, 8.3 ML, DAILY DOSE; SEE IMAGE
     Route: 042
     Dates: start: 20070702, end: 20070702
  4. BUSULFEX [Suspect]
     Indication: STEM CELL TRANSPLANT
     Dosage: 24.9 ML, DAILY DOSE, INTRAVENOUS, 33.2 ML, DAILY DOSE; INTRAVENOUS, 8.3 ML, DAILY DOSE; SEE IMAGE
     Route: 042
     Dates: start: 20080710, end: 20080710
  5. CYCLOSPORINE [Suspect]
     Dosage: 65 MG; INTRAVENOUS
     Route: 042
     Dates: start: 20080718
  6. FLUDARABINE PHOSPHATE [Suspect]
     Dosage: 50 MG; INTRAVENOUS
     Route: 042
     Dates: start: 20080707, end: 20080712
  7. PHENYTOIN SODIUM [Suspect]
     Dosage: 1500 MG; INTRAVENOUS
     Route: 042
     Dates: start: 20080709, end: 20080711
  8. METHYLPREDNISOLONE SODIUM SUCCINATE [Concomitant]
  9. FLUDARABINE PHOSPHATE [Concomitant]
  10. VALPROATE SODIUM [Concomitant]
  11. LENOGRASTIM [Concomitant]
  12. CYCLOSPORINE [Concomitant]

REACTIONS (26)
  - ACUTE GRAFT VERSUS HOST DISEASE [None]
  - BACTERIAL SEPSIS [None]
  - BIFIDOBACTERIUM INFECTION [None]
  - BLOOD CREATININE INCREASED [None]
  - BLOOD UREA INCREASED [None]
  - BONE MARROW TRANSPLANT [None]
  - BONE MARROW TRANSPLANT REJECTION [None]
  - BRONCHOPULMONARY ASPERGILLOSIS [None]
  - CANDIDA SEPSIS [None]
  - CLOSTRIDIUM DIFFICILE COLITIS [None]
  - CYTOMEGALOVIRUS VIRAEMIA [None]
  - ENTEROCOLITIS [None]
  - FUNGAL SEPSIS [None]
  - HYPERBILIRUBINAEMIA [None]
  - HYPERTENSION [None]
  - HYPOALBUMINAEMIA [None]
  - NAUSEA [None]
  - PANCYTOPENIA [None]
  - PNEUMONIA [None]
  - RASH [None]
  - RENAL DISORDER [None]
  - STAPHYLOCOCCAL SEPSIS [None]
  - STENOTROPHOMONAS INFECTION [None]
  - STOMATITIS [None]
  - TRICHOSPORON INFECTION [None]
  - VIRAL HAEMORRHAGIC CYSTITIS [None]
